FAERS Safety Report 4448275-7 (Version None)
Quarter: 2004Q3

REPORT INFORMATION
  Report Type: 
  Country: None (occurrence: None)
  Receive Date: 20040913
  Receipt Date: 20040903
  Transmission Date: 20050211
  Serious: Yes (Other)
  Sender: FDA-Public Use
  Company Number: US-MERCK-0409USA00267

PATIENT
  Sex: Female

DRUGS (2)
  1. CELEBREX [Concomitant]
     Route: 065
     Dates: start: 20000101, end: 20040719
  2. VIOXX [Suspect]
     Route: 048
     Dates: start: 20040720, end: 20040101

REACTIONS (5)
  - ASTHMA [None]
  - HEADACHE [None]
  - NASAL MUCOSAL DISORDER [None]
  - PYREXIA [None]
  - SINUS DISORDER [None]
